FAERS Safety Report 9562909 (Version 8)
Quarter: 2015Q1

REPORT INFORMATION
  Report Type: Spontaneous
  Country: US (occurrence: US)
  Receive Date: 20130927
  Receipt Date: 20150113
  Transmission Date: 20150721
  Serious: Yes (Hospitalization, Other)
  Sender: FDA-Public Use
  Company Number: US-009507513-1206USA04380

PATIENT
  Sex: Female

DRUGS (3)
  1. FOSAMAX [Suspect]
     Active Substance: ALENDRONATE SODIUM
     Indication: OSTEOPENIA
     Dosage: 70 MG, QW
     Route: 048
     Dates: end: 200711
  2. ALENDRONATE SODIUM. [Suspect]
     Active Substance: ALENDRONATE SODIUM
     Indication: OSTEOPOROSIS
     Dosage: 70 MG, QW
     Route: 048
     Dates: start: 200803, end: 201011
  3. FOSAMAX [Suspect]
     Active Substance: ALENDRONATE SODIUM
     Indication: OSTEOPOROSIS
     Dosage: 10 MG, UNK
     Route: 048
     Dates: start: 200205

REACTIONS (42)
  - Arthritis [Unknown]
  - Osteitis [Unknown]
  - Urinary tract infection [Unknown]
  - Hypothermia [Unknown]
  - Osteoarthritis [Unknown]
  - Hypertonic bladder [Unknown]
  - Intramedullary rod insertion [Unknown]
  - Surgery [Unknown]
  - Pulmonary congestion [Recovering/Resolving]
  - Foot fracture [Unknown]
  - Depression [Unknown]
  - Hypothyroidism [Unknown]
  - Fracture nonunion [Unknown]
  - Hyperlipidaemia [Unknown]
  - Hypersensitivity [Unknown]
  - Spinal laminectomy [Unknown]
  - Foot operation [Unknown]
  - Haemangioma of liver [Unknown]
  - Insomnia [Unknown]
  - Procedural nausea [Recovering/Resolving]
  - Muscle spasms [Unknown]
  - Oedema peripheral [Unknown]
  - Neurogenic bladder [Unknown]
  - Cystitis [Unknown]
  - Urinary tract infection [Not Recovered/Not Resolved]
  - Bursitis [Unknown]
  - Fall [Unknown]
  - Essential hypertension [Unknown]
  - Anaemia [Unknown]
  - Muscular weakness [Unknown]
  - Constipation [Unknown]
  - Arthralgia [Not Recovered/Not Resolved]
  - Femur fracture [Recovering/Resolving]
  - Knee arthroplasty [Unknown]
  - Tendonitis [Unknown]
  - Gastrointestinal inflammation [Unknown]
  - Back pain [Not Recovered/Not Resolved]
  - Contusion [Unknown]
  - Gastrooesophageal reflux disease [Unknown]
  - Anxiety [Unknown]
  - Barrett^s oesophagus [Unknown]
  - Anaemia postoperative [Recovered/Resolved]

NARRATIVE: CASE EVENT DATE: 2002
